FAERS Safety Report 6408196-7 (Version None)
Quarter: 2009Q4

REPORT INFORMATION
  Report Type: 
  Country: None (occurrence: None)
  Receive Date: 20091021
  Receipt Date: 20091015
  Transmission Date: 20100525
  Serious: Yes (Hospitalization)
  Sender: FDA-Public Use
  Company Number: GB-ROCHE-659620

PATIENT
  Sex: Female

DRUGS (4)
  1. CAPECITABINE [Suspect]
     Indication: COLON CANCER
     Dosage: INTERRUPTED MOST RECENT DOSE: 24 SEP 2009. CYCLE NO: 7
     Route: 048
     Dates: start: 20090512
  2. BEVACIZUMAB [Suspect]
     Indication: COLON CANCER
     Dosage: MOST RECENT DOSE: 14 SEP 2009. CYCLE NO: 7
     Route: 042
     Dates: start: 20090512
  3. FELODIPINE [Concomitant]
     Indication: HYPERTENSION
     Route: 048
  4. NEXIUM [Concomitant]
     Route: 048
     Dates: start: 20090101

REACTIONS (1)
  - ILEUS [None]
